FAERS Safety Report 8845785 (Version 2)
Quarter: 2012Q4

REPORT INFORMATION
  Report Type: 
  Country: US (occurrence: US)
  Receive Date: 20121017
  Receipt Date: 20121113
  Transmission Date: 20130627
  Serious: Yes (Hospitalization, Other)
  Sender: FDA-Public Use
  Company Number: US-PFIZER INC-2012257243

PATIENT
  Age: 47 Year
  Sex: Male
  Weight: 120 kg

DRUGS (5)
  1. LIPITOR [Suspect]
     Indication: HIGH CHOLESTEROL
     Dosage: 40 mg, UNK
  2. FLUOXETINE [Concomitant]
     Indication: DEPRESSION
     Dosage: 20 mg, daily
  3. LISINOPRIL [Concomitant]
     Indication: BLOOD PRESSURE ABNORMAL
     Dosage: 20 mg, daily
  4. OMEPRAZOLE [Concomitant]
     Indication: GASTROESOPHAGEAL REFLUX DISEASE
     Dosage: UNK
  5. OMEPRAZOLE [Concomitant]
     Indication: HEARTBURN

REACTIONS (4)
  - Coronary artery occlusion [Unknown]
  - Myocardial infarction [Unknown]
  - Chest pain [Unknown]
  - Cardiac disorder [Unknown]
